FAERS Safety Report 5597454-4 (Version None)
Quarter: 2008Q1

REPORT INFORMATION
  Report Type: 
  Country: None (occurrence: None)
  Receive Date: 20080121
  Receipt Date: 20080114
  Transmission Date: 20080703
  Serious: Yes (Life-Threatening, Hospitalization)
  Sender: FDA-Public Use
  Company Number: AT-ABBOTT-07P-009-0418970-00

PATIENT
  Sex: Male

DRUGS (7)
  1. ZEMPLAR [Suspect]
     Indication: HYPERPARATHYROIDISM SECONDARY
     Route: 042
     Dates: start: 20070410, end: 20070927
  2. ZEMPLAR [Suspect]
     Indication: RENAL FAILURE CHRONIC
  3. ESOMEPRAZOLE MAGNESIUM [Concomitant]
     Indication: HAEMODIALYSIS
     Route: 048
  4. MAXICALC D3 [Concomitant]
     Indication: HAEMODIALYSIS
     Route: 048
  5. SEVELAMER [Concomitant]
     Indication: HAEMODIALYSIS
     Route: 048
  6. FOLIC ACID [Concomitant]
     Indication: HAEMODIALYSIS
     Route: 048
  7. LEVOTHYROXINE SODIUM [Concomitant]
     Indication: DRUG USE FOR UNKNOWN INDICATION
     Route: 048

REACTIONS (7)
  - BLOOD DISORDER [None]
  - DERMATITIS EXFOLIATIVE [None]
  - ERYSIPELOID [None]
  - ERYTHEMA [None]
  - HAEMOLYSIS [None]
  - HYPERSENSITIVITY [None]
  - NAUSEA [None]
